FAERS Safety Report 8130602-0 (Version None)
Quarter: 2012Q1

REPORT INFORMATION
  Report Type: 
  Country: None (occurrence: None)
  Receive Date: 20120213
  Receipt Date: 20120206
  Transmission Date: 20120608
  Serious: Yes (Hospitalization)
  Sender: FDA-Public Use
  Company Number: US-AMGEN-USASP2012007845

PATIENT
  Age: 53 Year
  Sex: Female

DRUGS (5)
  1. ENBREL [Suspect]
     Indication: SYSTEMIC LUPUS ERYTHEMATOSUS
  2. ENBREL [Suspect]
     Indication: FIBROMYALGIA
  3. ENBREL [Suspect]
     Indication: SJOGREN'S SYNDROME
  4. ENBREL [Suspect]
     Indication: RHEUMATOID ARTHRITIS
     Dosage: 50 MG, QWK
     Dates: start: 20040921
  5. ENBREL [Suspect]
     Indication: RAYNAUD'S PHENOMENON

REACTIONS (13)
  - INCREASED TENDENCY TO BRUISE [None]
  - ARTHRALGIA [None]
  - SENSATION OF HEAVINESS [None]
  - IMMUNE SYSTEM DISORDER [None]
  - FINGER DEFORMITY [None]
  - INJECTION SITE PAIN [None]
  - WHITE BLOOD CELL COUNT ABNORMAL [None]
  - INJECTION SITE HAEMATOMA [None]
  - ARTERIAL INJURY [None]
  - INJECTION SITE HAEMORRHAGE [None]
  - CORONARY ARTERY OCCLUSION [None]
  - DYSGEUSIA [None]
  - WRONG TECHNIQUE IN DRUG USAGE PROCESS [None]
